FAERS Safety Report 7707631-1 (Version None)
Quarter: 2011Q3

REPORT INFORMATION
  Report Type: 
  Country: None (occurrence: None)
  Receive Date: 20110824
  Receipt Date: 20110811
  Transmission Date: 20111222
  Serious: Yes (Other)
  Sender: FDA-Public Use
  Company Number: BR-ELI_LILLY_AND_COMPANY-BR201106002476

PATIENT
  Sex: Female

DRUGS (1)
  1. BYETTA [Suspect]
     Dosage: 10 UG, QD
     Route: 065
     Dates: start: 20110101, end: 20110101

REACTIONS (8)
  - GASTROINTESTINAL CANDIDIASIS [None]
  - RETCHING [None]
  - NAUSEA [None]
  - ABDOMINAL PAIN UPPER [None]
  - DYSPEPSIA [None]
  - HAEMATEMESIS [None]
  - MALAISE [None]
  - OFF LABEL USE [None]
